FAERS Safety Report 5182978-4 (Version None)
Quarter: 2006Q4

REPORT INFORMATION
  Report Type: 
  Country: None (occurrence: None)
  Receive Date: 20061212
  Receipt Date: 20061128
  Transmission Date: 20070319
  Serious: Yes (Hospitalization)
  Sender: FDA-Public Use
  Company Number: 06US000843

PATIENT
  Sex: Female

DRUGS (1)
  1. LITHOBID [Suspect]
     Indication: DRUG USE FOR UNKNOWN INDICATION

REACTIONS (3)
  - DRUG LEVEL INCREASED [None]
  - HEPATOCELLULAR DAMAGE [None]
  - ROAD TRAFFIC ACCIDENT [None]
